FAERS Safety Report 21823363 (Version 3)
Quarter: 2023Q1

REPORT INFORMATION
  Report Type: Spontaneous
  Country: US (occurrence: US)
  Receive Date: 20230105
  Receipt Date: 20230215
  Transmission Date: 20230418
  Serious: No
  Sender: FDA-Public Use
  Company Number: US-LUPIN PHARMACEUTICALS INC.-2022-14964

PATIENT

DRUGS (4)
  1. LISINOPRIL [Suspect]
     Active Substance: LISINOPRIL
     Indication: Hypertension
     Dosage: 10 MG, QD
     Route: 065
  2. TAVALISSE [Concomitant]
     Active Substance: FOSTAMATINIB
     Indication: Thrombocytopenia
     Dosage: 2 DOSAGE FORM, QD
     Route: 065
     Dates: start: 20221219, end: 20221221
  3. TAVALISSE [Concomitant]
     Active Substance: FOSTAMATINIB
     Dosage: 2 DOSAGE FORM, QD
     Route: 065
     Dates: start: 20221227
  4. VITAMIN D [Concomitant]
     Active Substance: VITAMIN D NOS
     Indication: Product used for unknown indication
     Dosage: UNK
     Route: 065

REACTIONS (2)
  - Drug ineffective [Unknown]
  - Expired product administered [Unknown]
